FAERS Safety Report 23315483 (Version 1)
Quarter: 2023Q4

REPORT INFORMATION
  Report Type: Spontaneous
  Country: US (occurrence: US)
  Receive Date: 20231219
  Receipt Date: 20231219
  Transmission Date: 20240110
  Serious: No
  Sender: FDA-Public Use
  Company Number: US-ORG100016242-2023000100

PATIENT
  Sex: Male

DRUGS (1)
  1. EXPAREL [Suspect]
     Active Substance: BUPIVACAINE
     Indication: Medical procedure
     Dosage: NOT PROVIDED
     Route: 065
     Dates: start: 20230316, end: 20230316

REACTIONS (1)
  - Paranasal sinus hyposecretion [Unknown]
